FAERS Safety Report 8502740-1 (Version None)
Quarter: 2012Q3

REPORT INFORMATION
  Report Type: 
  Country: None (occurrence: None)
  Receive Date: 20120711
  Receipt Date: 20120702
  Transmission Date: 20120928
  Serious: Yes (Disabling, Other)
  Sender: FDA-Public Use
  Company Number: US-JNJFOC-20120405439

PATIENT
  Sex: Male
  Weight: 144 kg

DRUGS (6)
  1. PREDNISONE [Concomitant]
     Indication: CROHN'S DISEASE
     Route: 065
     Dates: start: 20120305
  2. REMICADE [Suspect]
     Indication: CROHN'S DISEASE
     Dosage: WEEK 2
     Route: 042
     Dates: start: 20120404
  3. BACTRIM DS [Concomitant]
     Indication: CROHN'S DISEASE
     Route: 065
     Dates: start: 20120305
  4. SULFASALAZINE [Concomitant]
     Indication: CROHN'S DISEASE
     Route: 065
     Dates: start: 20120305
  5. AMBIEN [Concomitant]
     Indication: INSOMNIA
     Route: 065
  6. REMICADE [Suspect]
     Dosage: WEEK 0 DOSE
     Route: 042
     Dates: start: 20120321

REACTIONS (3)
  - TREMOR [None]
  - PARAESTHESIA [None]
  - HYPOAESTHESIA [None]
